FAERS Safety Report 5915139-9 (Version None)
Quarter: 2008Q4

REPORT INFORMATION
  Report Type: 
  Country: None (occurrence: None)
  Receive Date: 20081010
  Receipt Date: 20081002
  Transmission Date: 20090506
  Serious: Yes (Other)
  Sender: FDA-Public Use
  Company Number: US-WYE-H06209108

PATIENT
  Sex: Female
  Weight: 52.21 kg

DRUGS (6)
  1. PRISTIQ [Suspect]
     Indication: BIPOLAR DISORDER
     Dosage: 50 MG (FREQUENCY UNSPECIFIED)
     Route: 048
     Dates: start: 20080925
  2. ATIVAN [Concomitant]
     Indication: ANXIETY
     Dosage: UNKNOWN AS NEEDED
  3. LIPITOR [Concomitant]
     Dosage: UNKNOWN
  4. FIORINAL [Concomitant]
     Indication: MIGRAINE
     Dosage: UNKNOWN
  5. TOPAMAX [Concomitant]
     Dosage: UNKNOWN
     Dates: start: 19980101
  6. TRAZODONE HCL [Concomitant]
     Indication: INSOMNIA
     Dosage: UNKNOWN

REACTIONS (5)
  - ANGER [None]
  - DEPRESSION [None]
  - HEADACHE [None]
  - IRRITABILITY [None]
  - SUICIDAL IDEATION [None]
